FAERS Safety Report 7382552-5 (Version None)
Quarter: 2011Q1

REPORT INFORMATION
  Report Type: 
  Country: None (occurrence: None)
  Receive Date: 20110329
  Receipt Date: 20110323
  Transmission Date: 20110831
  Serious: Yes (Other)
  Sender: FDA-Public Use
  Company Number: US-BAYER-2011-024968

PATIENT
  Age: 35 Year
  Sex: Male

DRUGS (1)
  1. IBUPROFEN [Suspect]
     Indication: BACK PAIN
     Dosage: }30 TABLETS/DAY
     Route: 048

REACTIONS (4)
  - PARALYSIS [None]
  - QUADRIPARESIS [None]
  - METABOLIC ACIDOSIS [None]
  - HYPOKALAEMIA [None]
